FAERS Safety Report 13177046 (Version 1)
Quarter: 2017Q1

REPORT INFORMATION
  Report Type: Report from Study
  Country: US (occurrence: US)
  Receive Date: 20170201
  Receipt Date: 20170201
  Transmission Date: 20170428
  Serious: No
  Sender: FDA-Public Use
  Company Number: US-EXELIXIS-CABO-16006953

PATIENT
  Sex: Female

DRUGS (14)
  1. TRAMADOL. [Concomitant]
     Active Substance: TRAMADOL
  2. MELOXICAM. [Concomitant]
     Active Substance: MELOXICAM
  3. METOPROLOL. [Concomitant]
     Active Substance: METOPROLOL
  4. MORPHINE [Concomitant]
     Active Substance: MORPHINE
  5. TIZANIDINE. [Concomitant]
     Active Substance: TIZANIDINE
  6. WELLBUTRIN [Concomitant]
     Active Substance: BUPROPION HYDROCHLORIDE
  7. ATIVAN [Concomitant]
     Active Substance: LORAZEPAM
  8. ESCITALOPRAM [Concomitant]
     Active Substance: ESCITALOPRAM OXALATE
  9. CABOMETYX [Suspect]
     Active Substance: CABOZANTINIB S-MALATE
     Dosage: 40 MG, QD
     Route: 048
     Dates: start: 2016
  10. OXYCODONE [Concomitant]
     Active Substance: OXYCODONE
  11. LOSARTAN. [Concomitant]
     Active Substance: LOSARTAN
  12. CABOMETYX [Suspect]
     Active Substance: CABOZANTINIB S-MALATE
     Indication: RENAL CANCER
     Dosage: 60 MG, QD
     Route: 048
     Dates: start: 20160615, end: 2016
  13. ASPIRIN. [Concomitant]
     Active Substance: ASPIRIN
  14. ZOFRAN [Concomitant]
     Active Substance: ONDANSETRON HYDROCHLORIDE

REACTIONS (4)
  - Rash [Unknown]
  - Pain [Unknown]
  - Joint swelling [Unknown]
  - Tongue discomfort [Unknown]
